FAERS Safety Report 9320314 (Version 2)
Quarter: 2013Q3

REPORT INFORMATION
  Report Type: Report from Study
  Country: VE (occurrence: VE)
  Receive Date: 20130530
  Receipt Date: 20130710
  Transmission Date: 20140515
  Serious: Yes (Death)
  Sender: FDA-Public Use
  Company Number: VE-ABBOTT-13P-178-1097162-00

PATIENT
  Age: 79 Year
  Sex: Female

DRUGS (1)
  1. ZEMPLAR [Suspect]
     Indication: RENAL FAILURE
     Dosage: APPLIED 1 ZEMPLAR DOSE.
     Route: 042

REACTIONS (2)
  - Myocardial infarction [Fatal]
  - Cardiac disorder [Fatal]
